FAERS Safety Report 5071277-7 (Version None)
Quarter: 2006Q3

REPORT INFORMATION
  Report Type: 
  Country: None (occurrence: None)
  Receive Date: 20060803
  Receipt Date: 20060803
  Transmission Date: 20061208
  Serious: No
  Sender: FDA-Public Use
  Company Number: None

PATIENT
  Age: 45 Year
  Sex: Female

DRUGS (5)
  1. DILANTIN [Suspect]
     Dates: start: 20040812, end: 20040924
  2. LOVENOX [Concomitant]
  3. COUMADIN [Concomitant]
  4. HYDROCODONE BITARTRATE [Concomitant]
  5. REGLAN [Concomitant]

REACTIONS (6)
  - ALANINE AMINOTRANSFERASE INCREASED [None]
  - ASPARTATE AMINOTRANSFERASE INCREASED [None]
  - BLOOD ALKALINE PHOSPHATASE INCREASED [None]
  - DEEP VEIN THROMBOSIS [None]
  - HEPATOCELLULAR DAMAGE [None]
  - HEPATOTOXICITY [None]
